FAERS Safety Report 5021298-5 (Version None)
Quarter: 2006Q2

REPORT INFORMATION
  Report Type: 
  Country: None (occurrence: None)
  Receive Date: 20060608
  Receipt Date: 20060602
  Transmission Date: 20061013
  Serious: Yes (Life-Threatening)
  Sender: FDA-Public Use
  Company Number: FR-GLAXOSMITHKLINE-B0426180A

PATIENT
  Age: 67 Year
  Sex: Female
  Weight: 53 kg

DRUGS (7)
  1. ZOPHREN [Suspect]
     Indication: PROPHYLAXIS OF NAUSEA AND VOMITING
     Dosage: 16MG CYCLIC
     Route: 048
     Dates: start: 20060424, end: 20060425
  2. ELOXATIN [Suspect]
     Indication: SMALL INTESTINE CARCINOMA
     Dosage: 70MG CYCLIC
     Route: 042
     Dates: start: 20060425, end: 20060426
  3. ERBITUX [Suspect]
     Indication: SMALL INTESTINE CARCINOMA
     Dosage: 393MG CYCLIC
     Route: 042
     Dates: start: 20060425, end: 20060426
  4. EMEND [Suspect]
     Indication: PROPHYLAXIS OF NAUSEA AND VOMITING
     Dosage: 125MG CYCLIC
     Route: 048
     Dates: start: 20060425, end: 20060426
  5. FLUOROURACIL [Suspect]
     Indication: SMALL INTESTINE CARCINOMA
     Dosage: 2198MG CYCLIC
     Route: 042
     Dates: start: 20060425, end: 20060426
  6. FOLIC ACID [Concomitant]
     Indication: SMALL INTESTINE CARCINOMA
     Route: 065
     Dates: start: 20060425, end: 20060426
  7. POLARAMINE [Concomitant]
     Indication: PROPHYLAXIS OF NAUSEA AND VOMITING
     Route: 065
     Dates: start: 20060424, end: 20060425

REACTIONS (2)
  - SEPSIS [None]
  - THROMBOCYTOPENIA [None]
